FAERS Safety Report 13206041 (Version 1)
Quarter: 2017Q1

REPORT INFORMATION
  Report Type: Not Available
  Country: US (occurrence: US)
  Receive Date: 20170209
  Receipt Date: 20170209
  Transmission Date: 20170428
  Serious: Yes (Other)
  Sender: FDA-Public Use
  Company Number: US-ANIPHARMA-2017-US-001417

PATIENT
  Age: 26 Year
  Sex: Male

DRUGS (2)
  1. LITHIUM CARBONATE (NON-SPECIFIC) [Concomitant]
     Active Substance: LITHIUM
     Dosage: 900 MG DAILY
  2. RISPERIDONE (NON-SPECIFIC) [Suspect]
     Active Substance: RISPERIDONE
     Dosage: 6 MG DAILY
     Route: 065

REACTIONS (1)
  - Cataract [Unknown]
